FAERS Safety Report 18664301 (Version 4)
Quarter: 2021Q1

REPORT INFORMATION
  Report Type: Spontaneous
  Country: US (occurrence: US)
  Receive Date: 20201225
  Receipt Date: 20210209
  Transmission Date: 20210419
  Serious: Yes (Death, Other)
  Sender: FDA-Public Use
  Company Number: US-JNJFOC-20201244047

PATIENT
  Age: 79 Year
  Sex: Male

DRUGS (12)
  1. GLUCOSAMINE HYDROCHLORIDE [Concomitant]
     Active Substance: GLUCOSAMINE HYDROCHLORIDE
     Route: 048
  2. CO ENZYME Q10 [UBIDECARENONE] [Concomitant]
     Route: 048
  3. GLUCOTROL XL [Concomitant]
     Active Substance: GLIPIZIDE
     Route: 048
  4. ECOTRIN [Concomitant]
     Active Substance: ASPIRIN
     Route: 048
  5. B. C. COMPLEX [Concomitant]
     Dosage: ON MONDAY AND THURSDAY
     Route: 048
  6. OSCAL D [Concomitant]
     Active Substance: CALCIUM CARBONATE\CHOLECALCIFEROL
     Route: 048
  7. VITAMIN D [ERGOCALCIFEROL] [Concomitant]
     Active Substance: ERGOCALCIFEROL
     Dosage: 1000 UNITS DAILY ON MONDAY AND THURSDAY
     Route: 048
  8. LOTRISONE [Concomitant]
     Active Substance: BETAMETHASONE DIPROPIONATE\CLOTRIMAZOLE
     Route: 061
  9. VITAMIN B12 [Concomitant]
     Active Substance: CYANOCOBALAMIN
     Route: 048
  10. HYDROCODONE/ACETAMINOPHEN [Concomitant]
     Active Substance: ACETAMINOPHEN\HYDROCODONE
     Indication: PAIN
     Dosage: 5/325 MG
     Route: 048
  11. ERLEADA [Suspect]
     Active Substance: APALUTAMIDE
     Indication: PROSTATE CANCER METASTATIC
     Route: 048
     Dates: start: 20200805
  12. FERROUS SULFATE. [Concomitant]
     Active Substance: FERROUS SULFATE
     Route: 048

REACTIONS (2)
  - Drug ineffective [Not Recovered/Not Resolved]
  - Prostate cancer metastatic [Fatal]
